FAERS Safety Report 8881582 (Version 1)
Quarter: 2012Q4

REPORT INFORMATION
  Report Type: Report from Study
  Country: MX (occurrence: MX)
  Receive Date: 20121101
  Receipt Date: 20121101
  Transmission Date: 20130627
  Serious: Yes (Hospitalization)
  Sender: FDA-Public Use
  Company Number: MX-PFIZER INC-2011271629

PATIENT
  Age: 62 Year
  Sex: Male
  Weight: 54 kg

DRUGS (9)
  1. FLUOROURACIL [Suspect]
     Indication: SQUAMOUS CELL CARCINOMA OF HEAD AND NECK
     Dosage: 1000 mg/m2, cyclic on days 1 to 4
     Route: 042
     Dates: start: 20111020
  2. CISPLATIN [Suspect]
     Indication: SQUAMOUS CELL CARCINOMA OF HEAD AND NECK
     Dosage: 100 mg/m2, cyclic on day 1
     Route: 042
     Dates: start: 20111020
  3. BLINDED THERAPY [Suspect]
     Indication: SQUAMOUS CELL CARCINOMA OF HEAD AND NECK
     Dosage: 400 mg/m2, day 1 for cycle 1 only
     Route: 042
     Dates: start: 20111020, end: 20111020
  4. BLINDED THERAPY [Suspect]
     Dosage: 250 mg/m2, weekly, on days 1, 8 and 15
     Route: 042
     Dates: start: 20111026
  5. TRAMADOL [Concomitant]
  6. ACETAMINOPHEN [Concomitant]
  7. SODIUM PICOSULFATE [Concomitant]
  8. GABAPENTIN [Concomitant]
  9. AMITRIPTYLINE [Concomitant]

REACTIONS (1)
  - Renal failure [Recovered/Resolved]
